FAERS Safety Report 5777798-3 (Version None)
Quarter: 2008Q2

REPORT INFORMATION
  Report Type: 
  Country: None (occurrence: None)
  Receive Date: 20080601
  Receipt Date: 20080121
  Transmission Date: 20081010
  Serious: No
  Sender: FDA-Public Use
  Company Number: US200801001339

PATIENT
  Age: 70 Year
  Sex: Female
  Weight: 90.7 kg

DRUGS (15)
  1. BYETTA [Suspect]
     Indication: INSULIN-REQUIRING TYPE 2 DIABETES MELLITUS
     Dosage: 5 UG, 2/D, SUBCUTANEOUS : 10 UG, 2/D, SUBCUTANEOUS
     Route: 058
     Dates: start: 20061031, end: 20061101
  2. BYETTA [Suspect]
     Indication: INSULIN-REQUIRING TYPE 2 DIABETES MELLITUS
     Dosage: 5 UG, 2/D, SUBCUTANEOUS : 10 UG, 2/D, SUBCUTANEOUS
     Route: 058
     Dates: start: 20061101, end: 20071228
  3. INSULIN [Concomitant]
  4. PLAVIX [Concomitant]
  5. AMIODARONE HCL [Concomitant]
  6. ADALAT CC [Concomitant]
  7. LISINOPRIL [Concomitant]
  8. LIPITOR [Concomitant]
  9. METOPROLOL TARTRATE [Concomitant]
  10. LEVOTHYROXINE SODIUM [Concomitant]
  11. DETROL [Concomitant]
  12. INDAPAMIDE [Concomitant]
  13. PREVACID [Concomitant]
  14. METFORMIN HCL [Concomitant]
  15. ASPIRIN [Concomitant]

REACTIONS (6)
  - DECREASED APPETITE [None]
  - KIDNEY INFECTION [None]
  - NAUSEA [None]
  - VOMITING [None]
  - VOMITING PROJECTILE [None]
  - WEIGHT DECREASED [None]
